FAERS Safety Report 11317086 (Version 1)
Quarter: 2015Q3

REPORT INFORMATION
  Report Type: Report from Study
  Country: KR (occurrence: KR)
  Receive Date: 20150728
  Receipt Date: 20150728
  Transmission Date: 20151125
  Serious: Yes (Death, Other)
  Sender: FDA-Public Use
  Company Number: KR-ASTELLAS-2015US026630

PATIENT
  Age: 70 Year
  Sex: Male

DRUGS (5)
  1. DIABEX [Concomitant]
     Active Substance: METFORMIN HYDROCHLORIDE
     Indication: DIABETES MELLITUS
     Dosage: 1000 MG DAILY, TWICE DAILY
     Route: 048
     Dates: start: 20150303
  2. MIRABEGRON [Suspect]
     Active Substance: MIRABEGRON
     Indication: HYPERTONIC BLADDER
     Dosage: 1 DF (TABLET), ONCE DAILY
     Route: 048
     Dates: start: 20150430
  3. EVOPRIM [Concomitant]
     Indication: DIABETES MELLITUS
     Route: 048
     Dates: start: 20140826
  4. HARNAL [Concomitant]
     Active Substance: TAMSULOSIN HYDROCHLORIDE
     Indication: BENIGN PROSTATIC HYPERPLASIA
     Dosage: 0.2 MG, ONCE DAILY
     Route: 048
     Dates: start: 20140912
  5. RENEXIN [Concomitant]
     Indication: DIABETES MELLITUS
     Dosage: 2 TABLET DAILY, TWICE DAILY
     Route: 048
     Dates: start: 20140901

REACTIONS (1)
  - Cardiac arrest [Fatal]

NARRATIVE: CASE EVENT DATE: 20150613
